FAERS Safety Report 8502497-4 (Version None)
Quarter: 2012Q3

REPORT INFORMATION
  Report Type: 
  Country: None (occurrence: None)
  Receive Date: 20120711
  Receipt Date: 20120711
  Transmission Date: 20120928
  Serious: Yes (Other)
  Sender: FDA-Public Use
  Company Number: GB-PFIZER INC-2012055634

PATIENT
  Age: 5 Year
  Sex: Male
  Weight: 17.5 kg

DRUGS (1)
  1. REFACTO [Suspect]
     Dosage: 500 IU, 3 TIMES A WEEK
     Route: 042
     Dates: start: 20100701

REACTIONS (1)
  - FACTOR VIII INHIBITION [None]
